FAERS Safety Report 10530430 (Version 1)
Quarter: 2014Q4

REPORT INFORMATION
  Report Type: Spontaneous
  Country: US (occurrence: None)
  Receive Date: 20141020
  Receipt Date: 20141020
  Transmission Date: 20150528
  Serious: Yes (Disabling)
  Sender: FDA-Public Use
  Company Number: None

PATIENT
  Age: 56 Year
  Sex: Female
  Weight: 68.04 kg

DRUGS (1)
  1. SULFAMETHOXAZOLE-TRIMETHOPRIM (SMZ) [Suspect]
     Active Substance: SULFAMETHOXAZOLE\TRIMETHOPRIM
     Indication: SINUSITIS
     Dosage: 1 PILL
     Route: 048
     Dates: start: 20141011, end: 20141018

REACTIONS (6)
  - Dizziness [None]
  - Cardiac disorder [None]
  - Tremor [None]
  - Muscle spasms [None]
  - Malaise [None]
  - Feeling abnormal [None]

NARRATIVE: CASE EVENT DATE: 20141018
